FAERS Safety Report 9701127 (Version 1)
Quarter: 2013Q4

REPORT INFORMATION
  Report Type: Spontaneous
  Country: IT (occurrence: BR)
  Receive Date: 20131121
  Receipt Date: 20131121
  Transmission Date: 20140711
  Serious: Yes (Hospitalization)
  Sender: FDA-Public Use
  Company Number: BR-FRI-1000051470

PATIENT
  Sex: Female

DRUGS (2)
  1. FOSFOMYCIN [Suspect]
     Indication: CYSTITIS
     Dosage: 1 DF
     Route: 048
     Dates: start: 2013, end: 2013
  2. PHENOBARBITAL [Concomitant]
     Indication: CONVULSION

REACTIONS (1)
  - Blood sodium decreased [Recovered/Resolved]
